FAERS Safety Report 10307676 (Version 3)
Quarter: 2014Q3

REPORT INFORMATION
  Report Type: Spontaneous
  Country: HR (occurrence: HR)
  Receive Date: 20140716
  Receipt Date: 20140806
  Transmission Date: 20150326
  Serious: Yes (Life-Threatening)
  Sender: FDA-Public Use
  Company Number: HR-TEVA-492792ISR

PATIENT
  Age: 57 Year
  Sex: Female
  Weight: 85 kg

DRUGS (1)
  1. NOVUROXIM [Suspect]
     Active Substance: CEFUROXIME AXETIL
     Indication: MASTITIS
     Route: 048
     Dates: start: 20131001, end: 20131004

REACTIONS (8)
  - Renal pain [Unknown]
  - Chills [Unknown]
  - Headache [Unknown]
  - Back pain [Unknown]
  - Feeling hot [Unknown]
  - Blood urine present [Unknown]
  - Pyrexia [Not Recovered/Not Resolved]
  - Dizziness [Unknown]

NARRATIVE: CASE EVENT DATE: 20131001
